FAERS Safety Report 24195788 (Version 1)
Quarter: 2024Q3

REPORT INFORMATION
  Report Type: Spontaneous
  Country: US (occurrence: US)
  Receive Date: 20240809
  Receipt Date: 20240809
  Transmission Date: 20241017
  Serious: No
  Sender: EMD SERONO INC
  Company Number: US-Merck Healthcare KGaA-2024042335

PATIENT
  Age: 73 Year
  Sex: Female

DRUGS (3)
  1. MAVENCLAD [Suspect]
     Active Substance: CLADRIBINE
     Indication: Multiple sclerosis
     Dosage: YEAR ONE THERAPY
     Dates: start: 20230224
  2. MAVENCLAD [Suspect]
     Active Substance: CLADRIBINE
     Dosage: YEAR TWO-MONTH ONE THERAPY AT A DOSE OF 2 TABLETS ON DAYS 1 TO 2  AND 1 TABLET ON DAYS 3 TO 5
     Dates: start: 20240701, end: 20240705
  3. MAVENCLAD [Suspect]
     Active Substance: CLADRIBINE
     Dosage: YEAR TWO-MONTH TWO THERAPY AT A DOSE OF 2 TABLETS ON DAYS 1 TO 2  AND 1 TABLET ON DAYS 3 TO 5
     Dates: start: 20240729, end: 20240802

REACTIONS (2)
  - Headache [Recovered/Resolved]
  - Sensory disturbance [Recovered/Resolved]

NARRATIVE: CASE EVENT DATE: 20240730
